FAERS Safety Report 11588580 (Version 1)
Quarter: 2015Q4

REPORT INFORMATION
  Report Type: Spontaneous
  Country: US (occurrence: None)
  Receive Date: 20151001
  Receipt Date: 20151001
  Transmission Date: 20160304
  Serious: No
  Sender: FDA-Public Use
  Company Number: None

PATIENT
  Age: 65 Year
  Sex: Male
  Weight: 99.5 kg

DRUGS (2)
  1. ATORVASTATIN [Suspect]
     Active Substance: ATORVASTATIN
     Route: 048
     Dates: start: 20140620, end: 20150402
  2. COBICISTAT/ELVITEGRAVIR/EMTRICITABINE/TENOFOVIR [Suspect]
     Active Substance: COBICISTAT\ELVITEGRAVIR\EMTRICITABINE\TENOFOVIR
     Indication: INFECTION
     Route: 048
     Dates: start: 20140920, end: 20150402

REACTIONS (7)
  - Alanine aminotransferase increased [None]
  - Pyrexia [None]
  - Aspartate aminotransferase increased [None]
  - Decreased appetite [None]
  - Drug interaction [None]
  - Fatigue [None]
  - Rhabdomyolysis [None]

NARRATIVE: CASE EVENT DATE: 20150402
